FAERS Safety Report 22323729 (Version 2)
Quarter: 2023Q4

REPORT INFORMATION
  Report Type: Spontaneous
  Country: IT (occurrence: IT)
  Receive Date: 20230516
  Receipt Date: 20231024
  Transmission Date: 20240109
  Serious: Yes (Other)
  Sender: FDA-Public Use
  Company Number: IT-PFIZER INC-202300188200

PATIENT
  Age: 68 Year
  Sex: Female

DRUGS (5)
  1. METHYLPREDNISOLONE [Suspect]
     Active Substance: METHYLPREDNISOLONE
     Indication: Linear IgA disease
     Dosage: UNK (7 DAYS)
  2. DOXYCYCLINE HYCLATE [Suspect]
     Active Substance: DOXYCYCLINE HYCLATE
     Indication: Linear IgA disease
     Dosage: UNK
  3. DAPSONE [Concomitant]
     Active Substance: DAPSONE
     Indication: Linear IgA disease
     Dosage: UNK
  4. SULFASALAZINE [Concomitant]
     Active Substance: SULFASALAZINE
     Indication: Linear IgA disease
     Dosage: UNK
  5. APREMILAST [Concomitant]
     Active Substance: APREMILAST
     Dosage: 30 MG, 2X/DAY
     Route: 048

REACTIONS (2)
  - Myopathy [Unknown]
  - Off label use [Unknown]
